FAERS Safety Report 10974549 (Version 2)
Quarter: 2015Q2

REPORT INFORMATION
  Report Type: Spontaneous
  Country: JP (occurrence: JP)
  Receive Date: 20150401
  Receipt Date: 20150611
  Transmission Date: 20150821
  Serious: Yes (Death)
  Sender: FDA-Public Use
  Company Number: JP-TEVA-551292ISR

PATIENT
  Sex: Female
  Weight: 38 kg

DRUGS (5)
  1. DUROTEP [Concomitant]
     Active Substance: FENTANYL
     Indication: CANCER PAIN
     Dosage: 4.2 MILLIGRAM DAILY;
     Route: 062
     Dates: start: 20141117, end: 20141120
  2. E-FEN BUCCAL [Suspect]
     Active Substance: FENTANYL CITRATE
     Dosage: 400 MICROGRAM DAILY;
     Route: 002
     Dates: start: 20141122, end: 20141122
  3. E-FEN BUCCAL [Suspect]
     Active Substance: FENTANYL CITRATE
     Indication: BREAKTHROUGH PAIN
     Dosage: 50 MICROGRAM-150 MICROGRAM
     Route: 002
     Dates: start: 20141118, end: 20141119
  4. E-FEN BUCCAL [Suspect]
     Active Substance: FENTANYL CITRATE
     Dosage: 100 MICROGRAM DAILY;
     Route: 002
     Dates: start: 20141120, end: 20141120
  5. DUROTEP [Concomitant]
     Active Substance: FENTANYL
     Dosage: 6.3 MILLIGRAM DAILY;
     Route: 062
     Dates: start: 20141120, end: 20141122

REACTIONS (1)
  - Neoplasm progression [Fatal]
